FAERS Safety Report 14669190 (Version 3)
Quarter: 2018Q2

REPORT INFORMATION
  Report Type: Spontaneous
  Country: JP (occurrence: JP)
  Receive Date: 20180322
  Receipt Date: 20180427
  Transmission Date: 20180711
  Serious: Yes (Other)
  Sender: FDA-Public Use
  Company Number: JP-BAYER-2018-050790

PATIENT
  Age: 79 Year
  Sex: Male

DRUGS (5)
  1. XOFIGO [Suspect]
     Active Substance: RADIUM RA-223 DICHLORIDE
     Indication: METASTASES TO BONE
     Dosage: 55KBQ/KG, Q1MON
     Route: 042
     Dates: start: 20180116, end: 20180116
  2. XOFIGO [Suspect]
     Active Substance: RADIUM RA-223 DICHLORIDE
     Indication: METASTASES TO BONE
     Dosage: 55KBQ/KG, Q1MON
     Route: 042
     Dates: start: 20180409, end: 20180409
  3. XOFIGO [Suspect]
     Active Substance: RADIUM RA-223 DICHLORIDE
     Indication: METASTASES TO BONE
     Dosage: 55KBQ/KG, Q1MON
     Route: 042
     Dates: start: 20180313, end: 20180313
  4. PREDNISOLONE. [Concomitant]
     Active Substance: PREDNISOLONE
  5. XOFIGO [Suspect]
     Active Substance: RADIUM RA-223 DICHLORIDE
     Indication: HORMONE-REFRACTORY PROSTATE CANCER
     Dosage: 55KBQ/KG, Q1MON
     Route: 042
     Dates: start: 20180213, end: 20180213

REACTIONS (3)
  - Hormone-refractory prostate cancer [None]
  - Cancer pain [Not Recovered/Not Resolved]
  - Metastases to bone [None]

NARRATIVE: CASE EVENT DATE: 201802
